FAERS Safety Report 7940390 (Version 6)
Quarter: 2014Q2

REPORT INFORMATION
  Report Type: Spontaneous
  Country: US (occurrence: US)
  Receive Date: 20110511
  Receipt Date: 20140626
  Transmission Date: 20141212
  Serious: No
  Sender: FDA-Public Use
  Company Number: US-ASTRAZENECA-2011SE26230

PATIENT
  Age: 73 Year
  Sex: Female
  Weight: 87.5 kg

DRUGS (12)
  1. RHINOCORT AQUA [Suspect]
     Indication: ASTHMA
     Dosage: 32 MCG, 2 SPRAYS IN EACH NOSTRIL QD
     Route: 045
  2. RHINOCORT AQUA [Suspect]
     Indication: SINUSITIS
     Dosage: 32 MCG, 2 SPRAYS IN EACH NOSTRIL QD
     Route: 045
  3. NEXIUM [Suspect]
     Dosage: ONE PER DAY
     Route: 048
  4. NEXIUM [Suspect]
     Dosage: TWO PER DAY
     Route: 048
  5. NEXIUM [Suspect]
     Route: 048
  6. NEXIUM [Suspect]
     Route: 048
  7. LISINOPRIL [Suspect]
     Route: 048
  8. TOPROL XL [Suspect]
     Route: 048
  9. CRESTOR [Suspect]
     Route: 048
  10. ACCOLATE [Suspect]
     Indication: ASTHMA
     Route: 048
  11. ACCOLATE [Suspect]
     Indication: ASTHMA
     Route: 048
  12. NEBULIZER [Concomitant]

REACTIONS (21)
  - Back disorder [Unknown]
  - Gastrooesophageal reflux disease [Unknown]
  - Oral mucosal blistering [Unknown]
  - Cheilitis [Unknown]
  - Stomatitis [Unknown]
  - Stomatitis [Unknown]
  - Cough [Unknown]
  - Asthma [Unknown]
  - Dysgeusia [Unknown]
  - Dyspnoea [Unknown]
  - Rhinorrhoea [Unknown]
  - Productive cough [Unknown]
  - Sinus disorder [Unknown]
  - Paranasal sinus hypersecretion [Unknown]
  - Sinusitis [Unknown]
  - Nasal congestion [Unknown]
  - Body height decreased [Unknown]
  - Drug hypersensitivity [Unknown]
  - Intentional product misuse [Unknown]
  - Drug dose omission [Unknown]
  - Drug ineffective [Unknown]
